FAERS Safety Report 8461235-4 (Version None)
Quarter: 2012Q2

REPORT INFORMATION
  Report Type: 
  Country: None (occurrence: None)
  Receive Date: 20120323
  Receipt Date: 20111018
  Transmission Date: 20120825
  Serious: Yes (Hospitalization)
  Sender: FDA-Public Use
  Company Number: 163-21880-11102274

PATIENT
  Age: 84 Year
  Sex: Male

DRUGS (3)
  1. REVLIMID [Suspect]
     Indication: MULTIPLE MYELOMA
     Dosage: 25 MG, DAILY X 21 DAYS, 7 DAYS OFF, PO
     Route: 048
     Dates: start: 20090901
  2. BENAZEPRIL HYDROCHLORIDE [Concomitant]
  3. AMLODIPINE/BENEZEPRIL (AMLODIPINE BESYLATE W/BENAZEPRIL HYDROCHLOR.) [Concomitant]

REACTIONS (3)
  - BRADYCARDIA [None]
  - HYPOTENSION [None]
  - DIARRHOEA [None]
